FAERS Safety Report 25786029 (Version 1)
Quarter: 2025Q3

REPORT INFORMATION
  Report Type: Spontaneous
  Country: US (occurrence: None)
  Receive Date: 20250910
  Receipt Date: 20250910
  Transmission Date: 20251021
  Serious: Yes (Other)
  Sender: FDA-CTU
  Company Number: None

PATIENT
  Age: 42 Year
  Sex: Male
  Weight: 68.04 kg

DRUGS (1)
  1. SUBOXONE [Suspect]
     Active Substance: BUPRENORPHINE HYDROCHLORIDE\NALOXONE HYDROCHLORIDE
     Indication: Drug withdrawal syndrome
     Dosage: OTHER QUANTITY : 8-2 MG;?FREQUENCY : TWICE A DAY;?
     Route: 060
     Dates: start: 20250828, end: 20250830

REACTIONS (4)
  - Lethargy [None]
  - Dizziness [None]
  - Confusional state [None]
  - Vomiting [None]

NARRATIVE: CASE EVENT DATE: 20250830
